FAERS Safety Report 22255372 (Version 1)
Quarter: 2023Q2

REPORT INFORMATION
  Report Type: Spontaneous
  Country: US (occurrence: None)
  Receive Date: 20230424
  Receipt Date: 20230424
  Transmission Date: 20230722
  Serious: Yes (Other)
  Sender: FDA-Public Use
  Company Number: None

PATIENT
  Sex: Female
  Weight: 109.77 kg

DRUGS (4)
  1. TYLENOL [Suspect]
     Active Substance: ACETAMINOPHEN
     Indication: Migraine
     Dosage: FREQUENCY : AS NEEDED;?
     Route: 048
  2. FLONASE [Concomitant]
     Active Substance: FLUTICASONE PROPIONATE
  3. Albuterol [Concomitant]
  4. Prenatal Vitamin [Concomitant]

REACTIONS (3)
  - Gestational hypertension [None]
  - Exposure during pregnancy [None]
  - Caesarean section [None]
